FAERS Safety Report 7982626-1 (Version None)
Quarter: 2011Q4

REPORT INFORMATION
  Report Type: 
  Country: None (occurrence: None)
  Receive Date: 20111215
  Receipt Date: 20111207
  Transmission Date: 20120403
  Serious: Yes (Hospitalization, Other)
  Sender: FDA-Public Use
  Company Number: BR-GLAXOSMITHKLINE-B0769130A

PATIENT
  Sex: Female
  Weight: 60 kg

DRUGS (7)
  1. ASPIRIN [Concomitant]
     Indication: THROMBOSIS PROPHYLAXIS
     Dosage: 100MG PER DAY
     Route: 048
     Dates: start: 20020101
  2. PROPAFENONE HCL [Suspect]
     Indication: ARRHYTHMIA
     Dosage: 1TAB PER DAY
     Route: 065
  3. FLUOXETINE HYDROCHLORIDE [Concomitant]
     Indication: ANXIETY
     Dosage: 10MG PER DAY
     Route: 048
  4. UNKNOWN ANTIBIOTICS [Suspect]
     Indication: PRODUCT USED FOR UNKNOWN INDICATION
     Route: 065
     Dates: start: 20110101
  5. DICLOFENAC SODIUM [Suspect]
     Indication: PRODUCT USED FOR UNKNOWN INDICATION
     Route: 065
     Dates: start: 20110101
  6. OMEPRAZOLE [Concomitant]
     Indication: GASTRITIS
     Dosage: 20MG TWICE PER DAY
     Route: 048
  7. LEVOTHYROXINE SODIUM [Concomitant]
     Indication: HYPOTHYROIDISM
     Dosage: 25MCG PER DAY
     Route: 048

REACTIONS (8)
  - WEIGHT DECREASED [None]
  - DRUG HYPERSENSITIVITY [None]
  - DIARRHOEA [None]
  - BLOOD PRESSURE DECREASED [None]
  - UNEVALUABLE EVENT [None]
  - ARRHYTHMIA [None]
  - URINARY INCONTINENCE [None]
  - HYPOTENSION [None]
